FAERS Safety Report 14959572 (Version 1)
Quarter: 2018Q2

REPORT INFORMATION
  Report Type: Spontaneous
  Country: US (occurrence: US)
  Receive Date: 20180531
  Receipt Date: 20180531
  Transmission Date: 20180711
  Serious: No
  Sender: FDA-Public Use
  Company Number: US-PERRIGO-17US026404

PATIENT
  Sex: Male
  Weight: 89.8 kg

DRUGS (2)
  1. OTHER OPHTHALMOLOGICALS [Concomitant]
     Indication: DRY EYE
     Dosage: UNK
     Route: 047
  2. MINOXIDIL. [Suspect]
     Active Substance: MINOXIDIL
     Indication: ALOPECIA
     Dosage: 1/2 CAPFUL, BID
     Route: 061
     Dates: start: 201704, end: 20170428

REACTIONS (3)
  - Drug ineffective [Unknown]
  - Condition aggravated [Not Recovered/Not Resolved]
  - Product administered at inappropriate site [Recovered/Resolved]

NARRATIVE: CASE EVENT DATE: 201704
